FAERS Safety Report 19459564 (Version 1)
Quarter: 2021Q2

REPORT INFORMATION
  Report Type: Spontaneous
  Country: PL (occurrence: PL)
  Receive Date: 20210624
  Receipt Date: 20210624
  Transmission Date: 20210717
  Serious: Yes (Other)
  Sender: FDA-Public Use
  Company Number: NVSC2021PL137678

PATIENT
  Age: 13 Year
  Sex: Male

DRUGS (4)
  1. MYCOPHENOLATE MOFETIL. [Suspect]
     Active Substance: MYCOPHENOLATE MOFETIL
     Indication: INTERSTITIAL LUNG DISEASE
     Dosage: 500 MG, QD
     Route: 065
  2. PREDNISONE. [Concomitant]
     Active Substance: PREDNISONE
     Dosage: 0.2 MG/KG (MAINTENANCE DOSE)
     Route: 065
  3. DEXAMETHASONE. [Concomitant]
     Active Substance: DEXAMETHASONE
     Indication: INTERSTITIAL LUNG DISEASE
     Dosage: 1.0 MG/KG
     Route: 065
  4. PREDNISONE. [Concomitant]
     Active Substance: PREDNISONE
     Indication: INTERSTITIAL LUNG DISEASE
     Dosage: 1.0 MG/KG (INITIAL DOSE)
     Route: 065

REACTIONS (6)
  - Drug ineffective for unapproved indication [Unknown]
  - Leukopenia [Unknown]
  - Hypogammaglobulinaemia [Unknown]
  - Lung infiltration [Unknown]
  - Lymphadenopathy [Unknown]
  - Splenomegaly [Unknown]
